FAERS Safety Report 7803308-2 (Version None)
Quarter: 2011Q4

REPORT INFORMATION
  Report Type: 
  Country: None (occurrence: None)
  Receive Date: 20111007
  Receipt Date: 20110930
  Transmission Date: 20120403
  Serious: Yes (Other)
  Sender: FDA-Public Use
  Company Number: US-US-EMD SERONO, INC.-7039021

PATIENT
  Sex: Female

DRUGS (3)
  1. REBIF [Suspect]
     Route: 058
  2. REBIF [Suspect]
     Indication: MULTIPLE SCLEROSIS
     Route: 058
     Dates: start: 20071221
  3. UNSPECIFIED MEDICATIONS [Concomitant]

REACTIONS (5)
  - BIPOLAR DISORDER [None]
  - POST PROCEDURAL INFECTION [None]
  - SELF INJURIOUS BEHAVIOUR [None]
  - AFFECTIVE DISORDER [None]
  - CENTRAL NERVOUS SYSTEM LESION [None]
